FAERS Safety Report 16541886 (Version 1)
Quarter: 2019Q3

REPORT INFORMATION
  Report Type: Spontaneous
  Country: BR (occurrence: BR)
  Receive Date: 20190708
  Receipt Date: 20190708
  Transmission Date: 20191004
  Serious: Yes (Other)
  Sender: FDA-Public Use
  Company Number: BR-JNJFOC-20190631937

PATIENT
  Sex: Male
  Weight: 57 kg

DRUGS (4)
  1. FENERGAN                           /00033001/ [Concomitant]
     Active Substance: PROMETHAZINE HYDROCHLORIDE
  2. HALDOL [Suspect]
     Active Substance: HALOPERIDOL
     Indication: PRODUCT USED FOR UNKNOWN INDICATION
     Route: 065
  3. ORAP [Suspect]
     Active Substance: PIMOZIDE
     Indication: PRODUCT USED FOR UNKNOWN INDICATION
     Route: 065
  4. ORAP [Suspect]
     Active Substance: PIMOZIDE
     Route: 065

REACTIONS (4)
  - Tremor [Unknown]
  - Suicidal ideation [Unknown]
  - Negative thoughts [Unknown]
  - Paranoia [Unknown]
